FAERS Safety Report 22298472 (Version 1)
Quarter: 2023Q2

REPORT INFORMATION
  Report Type: Spontaneous
  Country: DE (occurrence: None)
  Receive Date: 20230509
  Receipt Date: 20230509
  Transmission Date: 20230721
  Serious: Yes (Other)
  Sender: FDA-Public Use
  Company Number: DE-ROCHE-3346172

PATIENT
  Sex: Male

DRUGS (9)
  1. MABTHERA [Suspect]
     Active Substance: RITUXIMAB
     Indication: Diffuse large B-cell lymphoma
     Dosage: 1ST LINE SYSTEMIC TREATMENT, R-CHOP
     Route: 065
     Dates: start: 20200601, end: 20210101
  2. MABTHERA [Suspect]
     Active Substance: RITUXIMAB
     Dosage: 2ND LINE SYSTEMIC TREATMENT, 4X R-ICE
     Route: 065
     Dates: start: 20210701, end: 20211101
  3. MABTHERA [Suspect]
     Active Substance: RITUXIMAB
     Dosage: 3RD LINE SYSTEMIC TREATMENT, 2X POLA-R-GEM-OX
     Route: 065
     Dates: start: 20220813, end: 20221010
  4. POLIVY [Suspect]
     Active Substance: POLATUZUMAB VEDOTIN-PIIQ
     Indication: Diffuse large B-cell lymphoma
     Dosage: 3RD LINE SYSTEMIC TREATMENT, 2X POLA-R-GEM-OX
     Route: 065
     Dates: start: 20220813, end: 20221010
  5. CYCLOPHOSPHAMIDE\DOXORUBICIN\PREDNISONE\VINCRISTINE [Suspect]
     Active Substance: CYCLOPHOSPHAMIDE\DOXORUBICIN\PREDNISONE\VINCRISTINE
     Indication: Diffuse large B-cell lymphoma
     Dosage: 1ST LINE SYSTEMIC TREATMENT, R-CHOP
     Route: 065
     Dates: start: 20200601, end: 20210101
  6. CARBOPLATIN [Suspect]
     Active Substance: CARBOPLATIN
     Indication: Diffuse large B-cell lymphoma
     Dosage: 2ND LINE SYSTEMIC TREATMENT, 4XR-ICE
     Route: 065
     Dates: start: 20210701, end: 20211101
  7. GEMCITABINE HYDROCHLORIDE\OXALIPLATIN [Suspect]
     Active Substance: GEMCITABINE HYDROCHLORIDE\OXALIPLATIN
     Indication: Diffuse large B-cell lymphoma
     Dosage: 3RD LINE SYSTEMIC TREATMENT, 2X POLA-R-GEM-OX
     Route: 065
     Dates: start: 20220813, end: 20221010
  8. IFOSFAMIDE [Suspect]
     Active Substance: IFOSFAMIDE
     Indication: Diffuse large B-cell lymphoma
     Dosage: 2ND LINE SYSTEMIC TREATMENT, 4XR-ICE
     Route: 065
     Dates: start: 20210701, end: 20211101
  9. ETOPOSIDE [Suspect]
     Active Substance: ETOPOSIDE

REACTIONS (2)
  - Lymphoma [Not Recovered/Not Resolved]
  - Ejection fraction decreased [Unknown]
